FAERS Safety Report 18618589 (Version 1)
Quarter: 2020Q4

REPORT INFORMATION
  Report Type: Spontaneous
  Country: US (occurrence: US)
  Receive Date: 20201215
  Receipt Date: 20201215
  Transmission Date: 20210114
  Serious: Yes (Other)
  Sender: FDA-Public Use
  Company Number: US-PFIZER INC-2020489314

PATIENT
  Age: 40 Year
  Sex: Male

DRUGS (8)
  1. IMMUNOGLOBULIN HUMAN NORMAL [Suspect]
     Active Substance: HUMAN IMMUNOGLOBULIN G
     Indication: URTICARIAL VASCULITIS
     Dosage: UNK (2 G/KG OVER 36 HOURS, INFUSION)
     Route: 042
  2. METHYLPREDNISOLONE ACETATE. [Suspect]
     Active Substance: METHYLPREDNISOLONE ACETATE
     Dosage: 20 MG, 3X/DAY (OVER THE COURSE OF THE NEXT 10 DAYS)
  3. MYCOPHENOLATE MOFETIL. [Suspect]
     Active Substance: MYCOPHENOLATE MOFETIL
     Indication: URTICARIAL VASCULITIS
  4. PREDNISONE. [Suspect]
     Active Substance: PREDNISONE
     Indication: SYSTEMIC LUPUS ERYTHEMATOSUS
     Dosage: 60 MG, DAILY
  5. METHYLPREDNISOLONE ACETATE. [Suspect]
     Active Substance: METHYLPREDNISOLONE ACETATE
     Indication: URTICARIAL VASCULITIS
     Dosage: 80 MG, 3X/DAY
  6. PREDNISONE. [Suspect]
     Active Substance: PREDNISONE
     Dosage: 80 MG, 3X/DAY
  7. METHYLPREDNISOLONE ACETATE. [Suspect]
     Active Substance: METHYLPREDNISOLONE ACETATE
     Dosage: 10 MG, 3X/DAY
  8. MYCOPHENOLATE MOFETIL. [Suspect]
     Active Substance: MYCOPHENOLATE MOFETIL
     Indication: SYSTEMIC LUPUS ERYTHEMATOSUS
     Dosage: 1 G, 2X/DAY

REACTIONS (2)
  - Substance-induced psychotic disorder [Recovering/Resolving]
  - Drug ineffective [Unknown]
